FAERS Safety Report 8430207-8 (Version None)
Quarter: 2012Q2

REPORT INFORMATION
  Report Type: 
  Country: None (occurrence: None)
  Receive Date: 20120612
  Receipt Date: 20120531
  Transmission Date: 20120825
  Serious: Yes (Other)
  Sender: FDA-Public Use
  Company Number: GB-TEVA-315574ISR

PATIENT
  Age: 70 Year
  Sex: Female
  Weight: 77.5 kg

DRUGS (7)
  1. EUMOVATE [Concomitant]
     Indication: CELLULITIS
     Route: 061
     Dates: start: 20111111
  2. DOUBLEBASE [Concomitant]
     Indication: CELLULITIS
     Route: 061
     Dates: start: 20111111
  3. FLUCLOXACILLIN [Concomitant]
     Indication: CELLULITIS
     Route: 048
     Dates: start: 20111010, end: 20111012
  4. AMLODIPINE [Suspect]
     Indication: ESSENTIAL HYPERTENSION
     Dosage: DOSE REDUCED IN OCTOBER 2011 AND THEN STOPPED A MONTH LATER
     Route: 048
     Dates: start: 20051221, end: 20111111
  5. CANDESARTAN CILEXETIL [Concomitant]
     Indication: ESSENTIAL HYPERTENSION
     Route: 048
     Dates: start: 20060612
  6. BENDROFLUMETHIAZIDE [Concomitant]
     Indication: ESSENTIAL HYPERTENSION
     Route: 048
     Dates: start: 20110601
  7. BENDROFLUMETHIAZIDE [Concomitant]
     Dates: start: 20080401

REACTIONS (5)
  - DERMATITIS [None]
  - ULCER [None]
  - DERMATOSIS [None]
  - OEDEMA PERIPHERAL [None]
  - CELLULITIS [None]
